FAERS Safety Report 26037826 (Version 1)
Quarter: 2025Q4

REPORT INFORMATION
  Report Type: Spontaneous
  Country: US (occurrence: US)
  Receive Date: 20251112
  Receipt Date: 20251112
  Transmission Date: 20260117
  Serious: Yes (Other)
  Sender: BRACCO
  Company Number: US-BRACCO-2025US02576

PATIENT
  Age: 64 Year
  Sex: Male

DRUGS (25)
  1. LUMASON [Suspect]
     Active Substance: SULFUR HEXAFLUORIDE
     Indication: Echocardiogram
     Dosage: 2 ML, SINGLE
     Route: 042
     Dates: start: 20250415, end: 20250415
  2. LUMASON [Suspect]
     Active Substance: SULFUR HEXAFLUORIDE
     Indication: Echocardiogram
     Dosage: 2 ML, SINGLE
     Route: 042
     Dates: start: 20250415, end: 20250415
  3. LUMASON [Suspect]
     Active Substance: SULFUR HEXAFLUORIDE
     Indication: Echocardiogram
     Dosage: 2 ML, SINGLE
     Route: 042
     Dates: start: 20250415, end: 20250415
  4. ALDACTONE [Concomitant]
     Active Substance: SPIRONOLACTONE
  5. BETAPACE AF [Concomitant]
     Active Substance: SOTALOL HYDROCHLORIDE
  6. BRILINTA [Concomitant]
     Active Substance: TICAGRELOR
  7. COLCHICINE [Concomitant]
     Active Substance: COLCHICINE
  8. COZAAR [Concomitant]
     Active Substance: LOSARTAN POTASSIUM
  9. CRESTOR [Concomitant]
     Active Substance: ROSUVASTATIN CALCIUM
     Dosage: UNK
  10. DEXTROMETHORPHAN HYDROBROMIDE [Concomitant]
     Active Substance: DEXTROMETHORPHAN HYDROBROMIDE
  11. ELIQUIS [Concomitant]
     Active Substance: APIXABAN
  12. FLONASE [Concomitant]
     Active Substance: FLUTICASONE PROPIONATE
  13. FLOVENT HFA [Concomitant]
     Active Substance: FLUTICASONE PROPIONATE
  14. GLUCOPHAGE [Concomitant]
     Active Substance: METFORMIN HYDROCHLORIDE
     Dosage: 500 MG Q 24 HRS
  15. GLUCOTROL [Concomitant]
     Active Substance: GLIPIZIDE
     Dosage: 5 MG, QD
  16. LASIX [Concomitant]
     Active Substance: FUROSEMIDE
  17. MUCINEX [Concomitant]
     Active Substance: GUAIFENESIN
     Dosage: 600 MG Q 12 HOURS
  18. NICODERM CQ [Concomitant]
     Active Substance: NICOTINE
     Dosage: 14 MG Q 24 HRS
  19. NITROSTAT [Concomitant]
     Active Substance: NITROGLYCERIN
     Dosage: 0.4 MG TABLET
     Route: 060
  20. POTASSIUM CHLORIDE [Concomitant]
     Active Substance: POTASSIUM CHLORIDE
  21. PROVENTIL HFA [Concomitant]
     Active Substance: ALBUTEROL SULFATE
     Dosage: 90 MCG/ACT AERO SOLN
  22. SUDAFED [Concomitant]
     Active Substance: PSEUDOEPHEDRINE HYDROCHLORIDE
  23. TESSALON [Concomitant]
     Active Substance: BENZONATATE
  24. TOPROL XL [Concomitant]
     Active Substance: METOPROLOL SUCCINATE
     Dosage: 25 MG Q 24 HRS
  25. ZITHROMAX [Concomitant]
     Active Substance: AZITHROMYCIN DIHYDRATE

REACTIONS (5)
  - Hypotension [Recovered/Resolved]
  - Burning sensation [Recovered/Resolved]
  - Dyspnoea [Recovered/Resolved]
  - Pruritus [Recovered/Resolved]
  - Nausea [Recovered/Resolved]

NARRATIVE: CASE EVENT DATE: 20250415
